FAERS Safety Report 6805925-5 (Version None)
Quarter: 2010Q2

REPORT INFORMATION
  Report Type: 
  Country: None (occurrence: None)
  Receive Date: 20100629
  Receipt Date: 20071023
  Transmission Date: 20101027
  Serious: No
  Sender: FDA-Public Use
  Company Number: US-PFIZER INC-2007088618

PATIENT
  Age: 54 Year
  Sex: Female

DRUGS (1)
  1. ZYVOX [Suspect]
     Indication: ARTHRITIS INFECTIVE
     Dates: end: 20061101

REACTIONS (5)
  - ALOPECIA [None]
  - NAUSEA [None]
  - PARAESTHESIA [None]
  - VOMITING [None]
  - WEIGHT DECREASED [None]
